FAERS Safety Report 7974661-4 (Version None)
Quarter: 2011Q4

REPORT INFORMATION
  Report Type: 
  Country: None (occurrence: None)
  Receive Date: 20111213
  Receipt Date: 20111206
  Transmission Date: 20120403
  Serious: Yes (Disabling)
  Sender: FDA-Public Use
  Company Number: PHHY2011CH107542

PATIENT
  Age: 43 Year
  Sex: Female

DRUGS (3)
  1. ARIMIDEX [Concomitant]
     Indication: BREAST CANCER
     Dates: start: 20080801, end: 20110401
  2. ZOMETA [Suspect]
     Indication: BONE NEOPLASM MALIGNANT
     Dosage: 4 MG, QMO
     Dates: start: 20080901, end: 20110301
  3. LEUPROLIDE ACETATE [Concomitant]
     Indication: BREAST CANCER

REACTIONS (1)
  - OSTEONECROSIS OF JAW [None]
